FAERS Safety Report 15016745 (Version 2)
Quarter: 2018Q3

REPORT INFORMATION
  Report Type: Spontaneous
  Country: US (occurrence: US)
  Receive Date: 20180615
  Receipt Date: 20180808
  Transmission Date: 20181010
  Serious: Yes (Other)
  Sender: FDA-Public Use
  Company Number: US-BAYER-2018-113941

PATIENT
  Age: 25 Year
  Sex: Female
  Weight: 64.4 kg

DRUGS (1)
  1. SKYLA [Suspect]
     Active Substance: LEVONORGESTREL
     Indication: CONTRACEPTION
     Dosage: 14 MCG/24HR, CONT
     Route: 015
     Dates: start: 20160727, end: 20180702

REACTIONS (6)
  - Abortion spontaneous [Recovered/Resolved]
  - Genital haemorrhage [Recovered/Resolved]
  - Drug ineffective [None]
  - Ectopic pregnancy with contraceptive device [Recovered/Resolved]
  - Genital haemorrhage [Recovered/Resolved]
  - Abdominal pain lower [None]

NARRATIVE: CASE EVENT DATE: 2018
